FAERS Safety Report 10135710 (Version 1)
Quarter: 2014Q2

REPORT INFORMATION
  Report Type: Spontaneous
  Country: US (occurrence: US)
  Receive Date: 20140428
  Receipt Date: 20140428
  Transmission Date: 20141212
  Serious: Yes (Other)
  Sender: FDA-Public Use
  Company Number: US-ABBVIE-14P-163-1228275-00

PATIENT
  Age: 55 Year
  Sex: Male

DRUGS (2)
  1. TESTOSTERONE [Suspect]
     Indication: SEXUAL DYSFUNCTION
  2. ANASTROZOLE [Interacting]
     Indication: CARDIOVASCULAR DISORDER

REACTIONS (4)
  - Osteonecrosis of jaw [Recovered/Resolved]
  - Thrombosis [Recovered/Resolved]
  - Drug interaction [Recovered/Resolved]
  - Oestradiol increased [Recovered/Resolved]
